FAERS Safety Report 12557521 (Version 1)
Quarter: 2016Q3

REPORT INFORMATION
  Report Type: Report from Study
  Country: CA (occurrence: CA)
  Receive Date: 20160714
  Receipt Date: 20160714
  Transmission Date: 20161109
  Serious: No
  Sender: FDA-Public Use
  Company Number: CA-JNJFOC-20140309540

PATIENT
  Age: 55 Year
  Sex: Female

DRUGS (6)
  1. REMICADE [Suspect]
     Active Substance: INFLIXIMAB
     Indication: RHEUMATOID ARTHRITIS
     Route: 042
     Dates: start: 20120403
  2. CELEBREX [Concomitant]
     Active Substance: CELECOXIB
     Route: 048
  3. SYNTHROID [Concomitant]
     Active Substance: LEVOTHYROXINE SODIUM
     Route: 048
  4. METHOTREXATE. [Concomitant]
     Active Substance: METHOTREXATE
     Route: 048
  5. LEUCOVORIN. [Concomitant]
     Active Substance: LEUCOVORIN
     Route: 048
  6. PREMARIN [Concomitant]
     Active Substance: ESTROGENS, CONJUGATED
     Route: 048

REACTIONS (4)
  - Hyperaesthesia [Unknown]
  - Breast prosthesis implantation [Unknown]
  - Oedema peripheral [Unknown]
  - Erythema [Unknown]

NARRATIVE: CASE EVENT DATE: 20131216
